FAERS Safety Report 7723616-3 (Version None)
Quarter: 2011Q3

REPORT INFORMATION
  Report Type: 
  Country: None (occurrence: None)
  Receive Date: 20110826
  Receipt Date: 20110819
  Transmission Date: 20111222
  Serious: Yes (Hospitalization)
  Sender: FDA-Public Use
  Company Number: 2011001811

PATIENT
  Age: 65 Year
  Sex: Female
  Weight: 73 kg

DRUGS (24)
  1. AMBIEN [Concomitant]
  2. LANTUS [Concomitant]
  3. MAGNESIUM SULFATE [Concomitant]
  4. LIPITOR [Concomitant]
  5. ASPIRIN [Concomitant]
  6. BYETTA [Concomitant]
  7. NEURONTIN [Concomitant]
  8. SORAFENIB (SORAFENIB) [Suspect]
     Indication: LUNG NEOPLASM MALIGNANT
     Dosage: 200 MG, BID, ORAL, 200 MG, BID, ORAL
     Route: 048
     Dates: start: 20101006, end: 20101008
  9. SORAFENIB (SORAFENIB) [Suspect]
     Indication: LUNG NEOPLASM MALIGNANT
     Dosage: 200 MG, BID, ORAL, 200 MG, BID, ORAL
     Route: 048
     Dates: start: 20100903, end: 20100926
  10. ZOFRAN [Concomitant]
  11. IBUPROFEN [Concomitant]
  12. ERLOTINIB HYDROCHLORIDE [Suspect]
     Indication: LUNG NEOPLASM MALIGNANT
     Dosage: 150 MG, UID/QD, ORAL, 150 MG, UID/QD, ORAL
     Route: 048
     Dates: start: 20100820, end: 20100926
  13. ERLOTINIB HYDROCHLORIDE [Suspect]
     Indication: LUNG NEOPLASM MALIGNANT
     Dosage: 150 MG, UID/QD, ORAL, 150 MG, UID/QD, ORAL
     Route: 048
     Dates: start: 20101006, end: 20101008
  14. OMEPRAZOLE [Concomitant]
  15. GLUCOPHAGE [Concomitant]
  16. LISINOPRIL [Concomitant]
  17. MULTIVITAMINS (ASCORBIC ACID, ERGOCALCIFEROL, FOLIC ACID, NICOTINAMIDE [Concomitant]
  18. DELSYM [Concomitant]
  19. ALEVE [Concomitant]
  20. SYNTHROID [Concomitant]
  21. MS CONTIN [Concomitant]
  22. MS CONTIN [Concomitant]
  23. IMODIUM [Concomitant]
  24. MARINOL [Concomitant]

REACTIONS (9)
  - URINARY TRACT INFECTION [None]
  - NAUSEA [None]
  - VOMITING [None]
  - FATIGUE [None]
  - FEELING ABNORMAL [None]
  - SEPSIS [None]
  - ATELECTASIS [None]
  - ASTHENIA [None]
  - PSEUDOMONAS INFECTION [None]
